FAERS Safety Report 4624758-1 (Version None)
Quarter: 2005Q1

REPORT INFORMATION
  Report Type: 
  Country: None (occurrence: None)
  Receive Date: 20050107
  Receipt Date: 20041201
  Transmission Date: 20050727
  Serious: No
  Sender: FDA-Public Use
  Company Number: 235845K04USA

PATIENT
  Age: 31 Year
  Sex: Female
  Weight: 61.2356 kg

DRUGS (2)
  1. REBIF [Suspect]
     Indication: MULTIPLE SCLEROSIS
     Dosage: 44 MCG, 3 IN 1 WEEKS, SUBCUTANEOUS
     Route: 058
     Dates: start: 20030527
  2. SOLU-MEDROL [Concomitant]

REACTIONS (4)
  - AGEUSIA [None]
  - FATIGUE [None]
  - INJECTION SITE INDURATION [None]
  - INJECTION SITE REACTION [None]
